FAERS Safety Report 7572139-3 (Version None)
Quarter: 2011Q2

REPORT INFORMATION
  Report Type: 
  Country: None (occurrence: None)
  Receive Date: 20110624
  Receipt Date: 20110621
  Transmission Date: 20111010
  Serious: Yes (Hospitalization)
  Sender: FDA-Public Use
  Company Number: JP-ABBOTT-11P-087-0728238-00

PATIENT
  Sex: Male
  Weight: 53.3 kg

DRUGS (12)
  1. FEVER REDUCER [Concomitant]
     Indication: PRODUCT USED FOR UNKNOWN INDICATION
  2. CONIEL [Concomitant]
     Indication: HYPERTENSION
     Route: 048
     Dates: end: 20101115
  3. MUCODYNE [Concomitant]
     Indication: PNEUMONIA
     Route: 048
     Dates: start: 20101113, end: 20101115
  4. AMARYL [Concomitant]
     Indication: DIABETES MELLITUS
     Route: 048
     Dates: end: 20101115
  5. TAMSULOSIN HYDROCHLORIDE [Concomitant]
     Indication: BENIGN PROSTATIC HYPERPLASIA
     Route: 048
     Dates: end: 20101115
  6. EXPECTORANT [Concomitant]
     Indication: PRODUCT USED FOR UNKNOWN INDICATION
  7. LOXONIN [Concomitant]
     Indication: PNEUMONIA
     Route: 048
     Dates: start: 20101113, end: 20101115
  8. CARBENIN [Concomitant]
     Indication: PNEUMONIA
     Route: 048
     Dates: start: 20101113, end: 20101115
  9. NEOPHYLLIN [Concomitant]
     Indication: PNEUMONIA
     Route: 048
     Dates: start: 20101113, end: 20101115
  10. CLARITHROMYCIN [Suspect]
     Indication: PNEUMONIA
     Route: 048
     Dates: start: 20101113, end: 20101115
  11. MUCOSTA [Concomitant]
     Indication: PNEUMONIA
     Route: 048
     Dates: start: 20101113, end: 20101115
  12. GLYCYRON [Concomitant]
     Indication: HEPATIC FUNCTION ABNORMAL
     Route: 048
     Dates: end: 20101115

REACTIONS (1)
  - DEPRESSED LEVEL OF CONSCIOUSNESS [None]
